FAERS Safety Report 5365749-5 (Version None)
Quarter: 2007Q2

REPORT INFORMATION
  Report Type: 
  Country: None (occurrence: None)
  Receive Date: 20070621
  Receipt Date: 20070614
  Transmission Date: 20071010
  Serious: Yes (Other)
  Sender: FDA-Public Use
  Company Number: SE-BOEHRINGER INGELHEIM PHARMACEUTICALS, INC.-2007-DE-03497GD

PATIENT
  Age: 81 Year
  Sex: Male

DRUGS (3)
  1. DIPYRIDAMOLE [Suspect]
  2. NITROFURANTOIN [Suspect]
  3. SALICYLIC ACID [Suspect]
     Dosage: LOW-DOSE

REACTIONS (2)
  - ANAEMIA [None]
  - DUODENAL ULCER [None]
